FAERS Safety Report 24414710 (Version 1)
Quarter: 2024Q4

REPORT INFORMATION
  Report Type: Spontaneous
  Country: CA (occurrence: CA)
  Receive Date: 20241009
  Receipt Date: 20241009
  Transmission Date: 20250114
  Serious: Yes (Death)
  Sender: ROCHE
  Company Number: CA-ROCHE-10000099295

PATIENT
  Age: 73 Year
  Sex: Female

DRUGS (1)
  1. RITUXIMAB [Suspect]
     Active Substance: RITUXIMAB
     Indication: Non-Hodgkin^s lymphoma
     Route: 065

REACTIONS (2)
  - COVID-19 [Fatal]
  - Disease complication [Fatal]
